FAERS Safety Report 22361914 (Version 1)
Quarter: 2023Q2

REPORT INFORMATION
  Report Type: Spontaneous
  Country: US (occurrence: None)
  Receive Date: 20230524
  Receipt Date: 20230524
  Transmission Date: 20230721
  Serious: Yes (Other)
  Sender: FDA-Public Use
  Company Number: None

PATIENT
  Sex: Female

DRUGS (1)
  1. HUMIRA [Suspect]
     Active Substance: ADALIMUMAB
     Indication: Crohn^s disease
     Dosage: 80 MG/0.8ML ??RX1: INJECT 2 PENS UNDER THE SKIN (SUBCUTANEOUS INJECTION) AT DAY 1 AND INJECT 1 PEN A
     Route: 058
     Dates: start: 20230418

REACTIONS (3)
  - Quality of life decreased [None]
  - Product use issue [None]
  - Therapy interrupted [None]
